FAERS Safety Report 5018549-X (Version None)
Quarter: 2006Q2

REPORT INFORMATION
  Report Type: 
  Country: None (occurrence: None)
  Receive Date: 20060414
  Receipt Date: 20051216
  Transmission Date: 20061013
  Serious: No
  Sender: FDA-Public Use
  Company Number: 2005SP004467

PATIENT
  Age: 66 Year
  Sex: Male

DRUGS (15)
  1. LUNESTA [Suspect]
     Indication: SLEEP DISORDER
     Dosage: HS;ORAL
     Route: 048
     Dates: start: 20051115, end: 20050101
  2. METFORMIN HCL [Concomitant]
  3. VALSARTAN [Concomitant]
  4. AMLODIPINE [Concomitant]
  5. PROPOXYPHENE HYDROCHLORIDE [Concomitant]
  6. APAP TAB [Concomitant]
  7. PIOGLITAZONE HCL [Concomitant]
  8. TRIAMTERENE [Concomitant]
  9. HYDROCHLOROTHIAZIDE [Concomitant]
  10. LISINOPRIL [Concomitant]
  11. CYCLOBENZAPRINE HCL [Concomitant]
  12. GLIMEPIRIDE [Concomitant]
  13. METOPROLOL TARTRATE [Concomitant]
  14. ATORVASTATIN CALCIUM [Concomitant]
  15. LANTUS [Concomitant]

REACTIONS (5)
  - DIZZINESS [None]
  - DRUG INEFFECTIVE [None]
  - DYSGEUSIA [None]
  - HEADACHE [None]
  - INSOMNIA [None]
